FAERS Safety Report 16526738 (Version 1)
Quarter: 2019Q3

REPORT INFORMATION
  Report Type: Spontaneous
  Country: US (occurrence: US)
  Receive Date: 20190703
  Receipt Date: 20190703
  Transmission Date: 20191004
  Serious: No
  Sender: FDA-Public Use
  Company Number: US-AVEDRO-AVE-2019-0140-AE

PATIENT
  Age: 25 Year
  Sex: Male

DRUGS (2)
  1. AVEDRO CROSS-LINKING PRODUCT(S), UNSPECIFIED [Suspect]
     Active Substance: RIBOFLAVIN 5^-PHOSPHATE SODIUM
     Route: 047
     Dates: start: 201903, end: 201903
  2. AVEDRO CROSS-LINKING PRODUCT(S), UNSPECIFIED [Suspect]
     Active Substance: RIBOFLAVIN 5^-PHOSPHATE SODIUM
     Indication: KERATOCONUS
     Route: 047
     Dates: start: 201902, end: 201902

REACTIONS (2)
  - Foreign body sensation in eyes [Recovering/Resolving]
  - Foreign body sensation in eyes [Recovering/Resolving]

NARRATIVE: CASE EVENT DATE: 201902
